FAERS Safety Report 19959591 (Version 1)
Quarter: 2021Q4

REPORT INFORMATION
  Report Type: Spontaneous
  Country: FR (occurrence: FR)
  Receive Date: 20211015
  Receipt Date: 20211015
  Transmission Date: 20220303
  Serious: Yes (Hospitalization)
  Sender: FDA-Public Use
  Company Number: None

PATIENT
  Age: 26 Year
  Sex: Female

DRUGS (3)
  1. TRAMADOL [Suspect]
     Active Substance: TRAMADOL
     Indication: Drug use disorder
     Dosage: 8  X 200MG TOUTES LES 3 HEURES
     Route: 048
     Dates: start: 202102
  2. ZOPICLONE [Suspect]
     Active Substance: ZOPICLONE
     Indication: Product used for unknown indication
     Dosage: 10 DOSAGE FORM, QD, CP A7,5 MG
     Route: 048
     Dates: start: 2021
  3. PRAZEPAM [Suspect]
     Active Substance: PRAZEPAM
     Indication: Drug use disorder
     Dosage: 2 BOITES / JOUR
     Route: 048

REACTIONS (1)
  - Drug use disorder [Not Recovered/Not Resolved]

NARRATIVE: CASE EVENT DATE: 20210101
